FAERS Safety Report 20157259 (Version 1)
Quarter: 2021Q4

REPORT INFORMATION
  Report Type: Spontaneous
  Country: CN (occurrence: CN)
  Receive Date: 20211207
  Receipt Date: 20211207
  Transmission Date: 20220303
  Serious: Yes (Other)
  Sender: FDA-Public Use
  Company Number: CN-PFIZER INC-202101676765

PATIENT
  Age: 54 Year
  Sex: Male
  Weight: 71.9 kg

DRUGS (3)
  1. CYTARABINE [Suspect]
     Active Substance: CYTARABINE
     Indication: Chemotherapy
     Dosage: 20 MG, 2X/DAY
     Route: 041
     Dates: start: 20211027, end: 20211104
  2. DECITABINE [Suspect]
     Active Substance: DECITABINE
     Indication: Chemotherapy
     Dosage: 25 MG, 1X/DAY
     Route: 041
     Dates: start: 20211027, end: 20211102
  3. ACLARUBICIN HYDROCHLORIDE [Suspect]
     Active Substance: ACLARUBICIN HYDROCHLORIDE
     Indication: Chemotherapy
     Dosage: 20 MG, 2X/DAY
     Route: 041
     Dates: start: 20211028, end: 20211105

REACTIONS (2)
  - Hepatic enzyme increased [Recovered/Resolved]
  - Drug-induced liver injury [Recovered/Resolved]

NARRATIVE: CASE EVENT DATE: 20211114
